FAERS Safety Report 5782851-4 (Version None)
Quarter: 2008Q2

REPORT INFORMATION
  Report Type: 
  Country: None (occurrence: None)
  Receive Date: 20080619
  Receipt Date: 20080619
  Transmission Date: 20081010
  Serious: Yes (Life-Threatening, Hospitalization, Disabling, Other)
  Sender: FDA-Public Use
  Company Number: None

PATIENT
  Sex: Female
  Weight: 45.3597 kg

DRUGS (2)
  1. DIGITEK        MYLANBERTE [Suspect]
     Indication: ARRHYTHMIA
     Dosage: 0.25 MG 1 DAILY ORALLY
     Route: 048
     Dates: start: 20070101, end: 20080505
  2. DIGITEK        MYLANBERTE [Suspect]
     Indication: CARDIAC FAILURE
     Dosage: 0.25 MG 1 DAILY ORALLY
     Route: 048
     Dates: start: 20070101, end: 20080505

REACTIONS (14)
  - ASTHENIA [None]
  - BLOOD GLUCOSE DECREASED [None]
  - BLOOD GLUCOSE INCREASED [None]
  - CARDIOACTIVE DRUG LEVEL INCREASED [None]
  - CONFUSIONAL STATE [None]
  - FATIGUE [None]
  - HEART RATE DECREASED [None]
  - HEART RATE INCREASED [None]
  - HEART RATE IRREGULAR [None]
  - HYPOTENSION [None]
  - NAUSEA [None]
  - OXYGEN SATURATION DECREASED [None]
  - PROTHROMBIN LEVEL INCREASED [None]
  - VISUAL DISTURBANCE [None]
